FAERS Safety Report 7938876-3 (Version None)
Quarter: 2011Q4

REPORT INFORMATION
  Report Type: 
  Country: None (occurrence: None)
  Receive Date: 20111124
  Receipt Date: 20111115
  Transmission Date: 20120403
  Serious: Yes (Death)
  Sender: FDA-Public Use
  Company Number: US-RANBAXY-2011US-50554

PATIENT
  Age: 39 Year
  Sex: Male

DRUGS (1)
  1. METFORMIN HYDROCHLORIDE [Suspect]
     Indication: PRODUCT USED FOR UNKNOWN INDICATION
     Dosage: 90 G
     Route: 048

REACTIONS (4)
  - HAEMODYNAMIC REBOUND [None]
  - SUICIDE ATTEMPT [None]
  - OVERDOSE [None]
  - LACTIC ACIDOSIS [None]
